FAERS Safety Report 21397518 (Version 2)
Quarter: 2022Q4

REPORT INFORMATION
  Report Type: Spontaneous
  Country: US (occurrence: US)
  Receive Date: 20220930
  Receipt Date: 20221026
  Transmission Date: 20230112
  Serious: No
  Sender: FDA-Public Use
  Company Number: US-BAYER-2022A134808

PATIENT
  Age: 40 Year
  Sex: Female

DRUGS (1)
  1. CLIMARA PRO [Suspect]
     Active Substance: ESTRADIOL\LEVONORGESTREL
     Indication: Hormone replacement therapy
     Dosage: UNK
     Route: 062
     Dates: start: 2022, end: 2022

REACTIONS (2)
  - Intermenstrual bleeding [Recovered/Resolved]
  - Device defective [None]

NARRATIVE: CASE EVENT DATE: 20220101
